FAERS Safety Report 11994728 (Version 1)
Quarter: 2016Q1

REPORT INFORMATION
  Report Type: Spontaneous
  Country: US (occurrence: US)
  Receive Date: 20160203
  Receipt Date: 20160203
  Transmission Date: 20160526
  Serious: No
  Sender: FDA-Public Use
  Company Number: US-BEH-2014047377

PATIENT

DRUGS (1)
  1. ALBUMINAR-25 [Suspect]
     Active Substance: ALBUMIN (HUMAN)

REACTIONS (1)
  - Adverse drug reaction [Unknown]
